FAERS Safety Report 4915707-7 (Version None)
Quarter: 2006Q1

REPORT INFORMATION
  Report Type: 
  Country: None (occurrence: None)
  Receive Date: 20060217
  Receipt Date: 20051026
  Transmission Date: 20060701
  Serious: Yes (Death, Life-Threatening, Hospitalization)
  Sender: FDA-Public Use
  Company Number: PHBS2005JP15692

PATIENT
  Age: 67 Year
  Sex: Female

DRUGS (1)
  1. STARSIS [Suspect]
     Indication: DIABETES MELLITUS
     Dosage: 90 MG, TID
     Route: 048
     Dates: end: 20051010

REACTIONS (8)
  - ACUTE MYOCARDIAL INFARCTION [None]
  - BLOOD GLUCOSE DECREASED [None]
  - BRAIN DEATH [None]
  - DEATH [None]
  - DEPRESSED LEVEL OF CONSCIOUSNESS [None]
  - HYPOGLYCAEMIA [None]
  - HYPOGLYCAEMIC COMA [None]
  - TREATMENT NONCOMPLIANCE [None]
